FAERS Safety Report 17908247 (Version 2)
Quarter: 2022Q4

REPORT INFORMATION
  Report Type: Spontaneous
  Country: DE (occurrence: DE)
  Receive Date: 20200617
  Receipt Date: 20221020
  Transmission Date: 20230113
  Serious: Yes (Hospitalization)
  Sender: FDA-Public Use
  Company Number: DE-ADRED-04539-01

PATIENT
  Age: 54 Year
  Sex: Female
  Weight: 65 kg

DRUGS (5)
  1. METHOTREXATE SODIUM [Suspect]
     Active Substance: METHOTREXATE SODIUM
     Dosage: UNK
     Route: 048
     Dates: end: 20191030
  2. IODINE [Concomitant]
     Active Substance: IODINE
     Dosage: 0.2 MG, 1X/DAY, 1-0-0-0
     Route: 048
  3. FOLIC ACID [Concomitant]
     Active Substance: FOLIC ACID
     Dosage: 5 MG, 1X/DAY, 1-0-0-0
     Route: 048
  4. PREDNISOLONE [Concomitant]
     Active Substance: PREDNISOLONE
     Dosage: 5 MG, 1X/DAY, 1-0-0-0
     Route: 048
  5. CHOLECALCIFEROL [Concomitant]
     Active Substance: CHOLECALCIFEROL
     Dosage: 20000 IU, WEEKLY
     Route: 048

REACTIONS (6)
  - Dyspepsia [Unknown]
  - Abdominal pain [Unknown]
  - Nausea [Unknown]
  - Diarrhoea [Unknown]
  - Arthralgia [Unknown]
  - Pyrexia [Unknown]
